FAERS Safety Report 5412331-7 (Version None)
Quarter: 2007Q3

REPORT INFORMATION
  Report Type: 
  Country: None (occurrence: None)
  Receive Date: 20070713
  Receipt Date: 20070524
  Transmission Date: 20080115
  Serious: No
  Sender: FDA-Public Use
  Company Number: 2007SP001964

PATIENT
  Age: 60 Year
  Sex: Male
  Weight: 107.9561 kg

DRUGS (7)
  1. LUNESTA [Suspect]
     Indication: INSOMNIA
     Dosage: 2 MG;ORAL, 2.5 MG;1X;ORAL
     Route: 048
     Dates: start: 20070501, end: 20070501
  2. LUNESTA [Suspect]
     Indication: INSOMNIA
     Dosage: 2 MG;ORAL, 2.5 MG;1X;ORAL
     Route: 048
     Dates: start: 20070501
  3. LISINOPRIL [Concomitant]
  4. ATORVASTATIN CALCIUM [Concomitant]
  5. LORAZEPAM [Concomitant]
  6. EFFEXOR [Concomitant]
  7. GLYBURIDE [Concomitant]

REACTIONS (3)
  - DYSGEUSIA [None]
  - FATIGUE [None]
  - MIDDLE INSOMNIA [None]
